FAERS Safety Report 6059545-3 (Version None)
Quarter: 2009Q1

REPORT INFORMATION
  Report Type: 
  Country: None (occurrence: None)
  Receive Date: 20090127
  Receipt Date: 20090127
  Transmission Date: 20090719
  Serious: Yes (Other)
  Sender: FDA-Public Use
  Company Number: None

PATIENT
  Age: 51 Year
  Sex: Female
  Weight: 72.5755 kg

DRUGS (1)
  1. CYMBALTA [Suspect]
     Indication: DEPRESSION
     Dosage: 1 ONCE A DAY
     Dates: start: 20080810, end: 20090105

REACTIONS (4)
  - BLOOD PRESSURE INCREASED [None]
  - CONSTIPATION [None]
  - DIPLOPIA [None]
  - VISION BLURRED [None]
